FAERS Safety Report 11150810 (Version 1)
Quarter: 2015Q2

REPORT INFORMATION
  Report Type: Spontaneous
  Country: DE (occurrence: DE)
  Receive Date: 20150601
  Receipt Date: 20150601
  Transmission Date: 20150821
  Serious: Yes (Other)
  Sender: FDA-Public Use
  Company Number: DE-AUROBINDO-AUR-APL-2015-04705

PATIENT
  Age: 27 Year
  Sex: Female
  Weight: 48 kg

DRUGS (4)
  1. LEVETIRACTAM [Suspect]
     Active Substance: LEVETIRACETAM
     Indication: EPILEPSY
     Dosage: 500 MG, TWO TIMES A DAY
     Route: 048
     Dates: start: 20131123, end: 20140818
  2. JODID [Concomitant]
     Active Substance: IODINE
     Indication: IODINE DEFICIENCY
     Dosage: UNK
     Route: 048
  3. ASPIRIN. [Concomitant]
     Active Substance: ASPIRIN
     Indication: FACTOR V DEFICIENCY
     Dosage: 100 MG, ONCE A DAY
     Route: 048
  4. TOPIRAMATE 25MG [Suspect]
     Active Substance: TOPIRAMATE
     Indication: EPILEPSY
     Dosage: 25 MG, ONCE A DAY
     Route: 048
     Dates: start: 20131123, end: 20140818

REACTIONS (2)
  - Epilepsy [Unknown]
  - Maternal exposure during pregnancy [Unknown]
